FAERS Safety Report 17206312 (Version 2)
Quarter: 2020Q1

REPORT INFORMATION
  Report Type: Report from Study
  Country: NL (occurrence: NL)
  Receive Date: 20191212
  Receipt Date: 20200114
  Transmission Date: 20200409
  Serious: Yes (Hospitalization)
  Sender: FDA-Public Use
  Company Number: NL-BEIGENE AUS PTY LTD-BGN-2019-002121

PATIENT

DRUGS (2)
  1. ZANUBRUTINIB [Suspect]
     Active Substance: ZANUBRUTINIB
     Dosage: UNK
     Dates: start: 20191209
  2. ZANUBRUTINIB [Suspect]
     Active Substance: ZANUBRUTINIB
     Indication: CHRONIC LYMPHOCYTIC LEUKAEMIA
     Dosage: 160 MILLIGRAM
     Route: 048
     Dates: start: 20191112, end: 20191128

REACTIONS (1)
  - Haemarthrosis [Recovering/Resolving]

NARRATIVE: CASE EVENT DATE: 20191128
